FAERS Safety Report 14938616 (Version 1)
Quarter: 2018Q2

REPORT INFORMATION
  Report Type: Spontaneous
  Country: US (occurrence: US)
  Receive Date: 20180525
  Receipt Date: 20180525
  Transmission Date: 20180711
  Serious: Yes (Other)
  Sender: FDA-Public Use
  Company Number: US-JNJFOC-20180524876

PATIENT

DRUGS (1)
  1. HUMAN THROMBIN [Suspect]
     Active Substance: THROMBIN HUMAN
     Indication: VASCULAR PSEUDOANEURYSM
     Dosage: 500 U
     Route: 050

REACTIONS (5)
  - Thrombosis [Unknown]
  - Product use in unapproved indication [Unknown]
  - Drug ineffective for unapproved indication [Unknown]
  - Off label use [Unknown]
  - Infection [Unknown]
